FAERS Safety Report 21293835 (Version 2)
Quarter: 2022Q3

REPORT INFORMATION
  Report Type: Spontaneous
  Country: US (occurrence: US)
  Receive Date: 20220905
  Receipt Date: 20220923
  Transmission Date: 20221026
  Serious: Yes (Other)
  Sender: FDA-Public Use
  Company Number: US-drreddys-LIT/USA/22/0154122

PATIENT
  Age: 60 Year
  Sex: Female

DRUGS (5)
  1. QUETIAPINE FUMARATE [Suspect]
     Active Substance: QUETIAPINE FUMARATE
     Indication: Psychotic disorder
  2. QUETIAPINE FUMARATE [Suspect]
     Active Substance: QUETIAPINE FUMARATE
     Indication: Depressive symptom
     Dosage: QUETIAPINE INCREASED TO 200 MG IN JULY 2019 AND THEN NOT TOLERATED SO DECREASED TO 100 MG
     Dates: start: 201812, end: 201907
  3. QUETIAPINE FUMARATE [Suspect]
     Active Substance: QUETIAPINE FUMARATE
     Dates: start: 201907, end: 2019
  4. QUETIAPINE FUMARATE [Suspect]
     Active Substance: QUETIAPINE FUMARATE
     Dosage: QUETIAPINE INCREASED TO 200 MG IN JULY 2019 AND THEN NOT TOLERATED SO DECREASED TO 100 MG
     Dates: start: 2019, end: 2019
  5. RISPERIDONE [Suspect]
     Active Substance: RISPERIDONE
     Indication: Schizoaffective disorder bipolar type

REACTIONS (9)
  - Persistent depressive disorder [Unknown]
  - Condition aggravated [Unknown]
  - Persecutory delusion [Unknown]
  - Psychotic disorder [Unknown]
  - Affective disorder [Unknown]
  - Drug ineffective [Unknown]
  - Drug intolerance [Unknown]
  - Sedation complication [Unknown]
  - Lip swelling [Unknown]

NARRATIVE: CASE EVENT DATE: 20180101
